FAERS Safety Report 24978469 (Version 1)
Quarter: 2025Q1

REPORT INFORMATION
  Report Type: Spontaneous
  Country: US (occurrence: US)
  Receive Date: 20250217
  Receipt Date: 20250217
  Transmission Date: 20250409
  Serious: No
  Sender: ROCHE
  Company Number: US-ROCHE-10000209821

PATIENT
  Sex: Male

DRUGS (9)
  1. ERIVEDGE [Suspect]
     Active Substance: VISMODEGIB
     Indication: Chronic kidney disease
     Route: 065
  2. STOOL SOFTEN [Concomitant]
  3. TYLENOL [Concomitant]
     Active Substance: ACETAMINOPHEN
  4. CARVEDILOL [Concomitant]
     Active Substance: CARVEDILOL
  5. FAMOTIDINE [Concomitant]
     Active Substance: FAMOTIDINE
  6. FINASTERIDE [Concomitant]
     Active Substance: FINASTERIDE
  7. METOPROLOL [Concomitant]
     Active Substance: METOPROLOL
  8. Sertraline H [Concomitant]
  9. Tamulosin H [Concomitant]

REACTIONS (1)
  - Nausea [Unknown]
